FAERS Safety Report 18399689 (Version 1)
Quarter: 2020Q4

REPORT INFORMATION
  Report Type: Spontaneous
  Country: US (occurrence: US)
  Receive Date: 20201019
  Receipt Date: 20201019
  Transmission Date: 20210114
  Serious: Yes (Other)
  Sender: FDA-Public Use
  Company Number: US-AMGEN INC.-USASP2020168573

PATIENT

DRUGS (1)
  1. AIMOVIG [Suspect]
     Active Substance: ERENUMAB-AOOE
     Indication: PRODUCT USED FOR UNKNOWN INDICATION
     Dosage: UNK
     Route: 065

REACTIONS (6)
  - Impaired gastric emptying [Unknown]
  - Alopecia [Unknown]
  - Constipation [Unknown]
  - Dizziness [Unknown]
  - Renal pain [Not Recovered/Not Resolved]
  - Pollakiuria [Unknown]
